FAERS Safety Report 16540057 (Version 1)
Quarter: 2019Q3

REPORT INFORMATION
  Report Type: Spontaneous
  Country: US (occurrence: US)
  Receive Date: 20190707
  Receipt Date: 20190707
  Transmission Date: 20191004
  Serious: No
  Sender: FDA-Public Use
  Company Number: None

PATIENT
  Age: 31 Year
  Sex: Female
  Weight: 95.25 kg

DRUGS (1)
  1. NEXPLANON [Suspect]
     Active Substance: ETONOGESTREL

REACTIONS (5)
  - Dental restoration failure [None]
  - Gingival bleeding [None]
  - Dental caries [None]
  - Tooth discolouration [None]
  - Hyperaesthesia teeth [None]

NARRATIVE: CASE EVENT DATE: 20190114
